FAERS Safety Report 5778102-7 (Version None)
Quarter: 2008Q2

REPORT INFORMATION
  Report Type: 
  Country: None (occurrence: None)
  Receive Date: 20080619
  Receipt Date: 20080610
  Transmission Date: 20081010
  Serious: Yes (Other)
  Sender: FDA-Public Use
  Company Number: CA-SOLVAY-00208002575

PATIENT
  Sex: Female

DRUGS (1)
  1. PERINDOPRIL ERBUMINE [Suspect]
     Indication: DRUG USE FOR UNKNOWN INDICATION
     Dosage: DAILY DOSE:  UNKNOWN
     Route: 048
     Dates: end: 20080101

REACTIONS (1)
  - COLITIS ULCERATIVE [None]
